FAERS Safety Report 9529452 (Version 6)
Quarter: 2014Q3

REPORT INFORMATION
  Report Type: Spontaneous
  Country: JP (occurrence: JP)
  Receive Date: 20130917
  Receipt Date: 20140909
  Transmission Date: 20150326
  Serious: Yes (Other)
  Sender: FDA-Public Use
  Company Number: PHHY2013JP100092

PATIENT
  Age: 28 Year
  Sex: Female

DRUGS (3)
  1. PREDNISOLONE. [Suspect]
     Active Substance: PREDNISOLONE
     Indication: PUSTULAR PSORIASIS
     Dosage: 30 MG
     Route: 048
     Dates: end: 20130607
  2. ULTRAVIOLET-B TREATMENT [Suspect]
     Active Substance: UNSPECIFIED INGREDIENT
     Indication: PUSTULAR PSORIASIS
  3. NEORAL [Suspect]
     Active Substance: CYCLOSPORINE
     Indication: HAEMOLYTIC ANAEMIA
     Dosage: 175-250 MG, DAILY
     Route: 048
     Dates: start: 20130112, end: 20131206

REACTIONS (6)
  - Acquired haemophilia [Unknown]
  - Disease progression [Unknown]
  - Delivery [Unknown]
  - Maternal exposure during pregnancy [Unknown]
  - Gestational diabetes [Recovered/Resolved]
  - Pustular psoriasis [Unknown]

NARRATIVE: CASE EVENT DATE: 20130109
